FAERS Safety Report 7551500-7 (Version None)
Quarter: 2011Q2

REPORT INFORMATION
  Report Type: 
  Country: None (occurrence: None)
  Receive Date: 20110609
  Receipt Date: 20110527
  Transmission Date: 20111010
  Serious: Yes (Other)
  Sender: FDA-Public Use
  Company Number: 2011MA006610

PATIENT
  Age: 15 Year
  Sex: Female

DRUGS (2)
  1. VALPROATE SODIUM [Concomitant]
  2. LEVETIRACETAM [Suspect]
     Indication: JUVENILE MYOCLONIC EPILEPSY
     Dosage: 1500 MG;BID;PO
     Route: 048

REACTIONS (6)
  - CONDITION AGGRAVATED [None]
  - AGGRESSION [None]
  - MOOD ALTERED [None]
  - GRAND MAL CONVULSION [None]
  - THERMAL BURN [None]
  - INJURY [None]
